FAERS Safety Report 26206045 (Version 1)
Quarter: 2025Q4

REPORT INFORMATION
  Report Type: Spontaneous
  Country: CN (occurrence: CN)
  Receive Date: 20251229
  Receipt Date: 20251229
  Transmission Date: 20260118
  Serious: Yes (Death, Other)
  Sender: ADAPTIS PHARMA INDIA
  Company Number: CN-Adaptis Pharma Private Limited-2191483

PATIENT
  Age: 65 Year
  Sex: Male

DRUGS (7)
  1. BICALUTAMIDE [Suspect]
     Active Substance: BICALUTAMIDE
     Indication: Prostate cancer
  2. EPIRUBICIN [Concomitant]
     Active Substance: EPIRUBICIN
  3. TORIPALIMAB [Suspect]
     Active Substance: TORIPALIMAB
  4. CATEQUENTINIB [Suspect]
     Active Substance: CATEQUENTINIB
  5. GOSERELIN [Suspect]
     Active Substance: GOSERELIN
  6. ETOPOSIDE [Suspect]
     Active Substance: ETOPOSIDE
  7. LEUPROLIDE ACETATE [Concomitant]
     Active Substance: LEUPROLIDE ACETATE

REACTIONS (5)
  - Platelet count increased [Unknown]
  - Epilepsy [Unknown]
  - Prostate cancer metastatic [Fatal]
  - Neutropenia [Unknown]
  - Prostatic specific antigen increased [Unknown]
